FAERS Safety Report 24383292 (Version 3)
Quarter: 2025Q1

REPORT INFORMATION
  Report Type: Spontaneous
  Country: US (occurrence: US)
  Receive Date: 20241001
  Receipt Date: 20250221
  Transmission Date: 20250409
  Serious: No
  Sender: CATALYST PHARMA
  Company Number: US-CATALYST PHARMACEUTICALS-US-CATA-24-00706

PATIENT
  Sex: Male
  Weight: 36.735 kg

DRUGS (8)
  1. AGAMREE [Suspect]
     Active Substance: VAMOROLONE
     Indication: Duchenne muscular dystrophy
     Dosage: 3.9 ML DAILY
     Route: 048
     Dates: start: 20240408, end: 2024
  2. AGAMREE [Suspect]
     Active Substance: VAMOROLONE
     Dosage: 4.9 ML DAILY
     Route: 048
     Dates: start: 20241009
  3. DUVYZAT [Suspect]
     Active Substance: GIVINOSTAT
     Indication: Product used for unknown indication
     Dosage: 3.5 ML TWICE DAILY
     Route: 065
     Dates: start: 202412, end: 202412
  4. LISINOPRIL [Concomitant]
     Active Substance: LISINOPRIL
     Indication: Cardiovascular disorder
     Dosage: 2.5 MG DAILY
     Route: 065
  5. VITAMIN D3 GUMMY [Concomitant]
     Indication: Hypovitaminosis
     Dosage: 4000 IU DAILY
     Route: 065
  6. VITAMIN D3 GUMMY [Concomitant]
     Dosage: 2 GUMMIES DAILY
     Route: 065
  7. MULTIVITAMIN KIDS GUMMY [Concomitant]
     Indication: Hypovitaminosis
     Dosage: 1 GUMMY DAILY
     Route: 065
  8. ZARBEE^S SLEEP CHILD MELATONIN [Concomitant]
     Indication: Insomnia
     Route: 065

REACTIONS (4)
  - Rash [Not Recovered/Not Resolved]
  - Emotional disorder [Not Recovered/Not Resolved]
  - Weight increased [Not Recovered/Not Resolved]
  - Increased appetite [Not Recovered/Not Resolved]

NARRATIVE: CASE EVENT DATE: 20240101
